FAERS Safety Report 18107206 (Version 1)
Quarter: 2020Q3

REPORT INFORMATION
  Report Type: Spontaneous
  Country: US (occurrence: US)
  Receive Date: 20200803
  Receipt Date: 20200803
  Transmission Date: 20201103
  Serious: No
  Sender: FDA-Public Use
  Company Number: None

PATIENT
  Age: 60 Year
  Sex: Female
  Weight: 82.1 kg

DRUGS (2)
  1. LEVOXYL [Suspect]
     Active Substance: LEVOTHYROXINE SODIUM
     Dosage: ?          OTHER DOSE:LEVOXYL 25MCG;?
     Route: 048
     Dates: start: 20200724, end: 20200727
  2. LEVOTHYROXINE 25MCG [Suspect]
     Active Substance: LEVOTHYROXINE
     Indication: HYPOTHYROIDISM
     Dosage: ?          OTHER DOSE:LEVOTHYROXINE25MCG;?
     Route: 048
     Dates: start: 20200615, end: 20200629

REACTIONS (5)
  - Dry mouth [None]
  - Headache [None]
  - Diarrhoea [None]
  - Fatigue [None]
  - Mood swings [None]
